FAERS Safety Report 19410860 (Version 1)
Quarter: 2021Q2

REPORT INFORMATION
  Report Type: Spontaneous
  Country: US (occurrence: US)
  Receive Date: 20210614
  Receipt Date: 20210614
  Transmission Date: 20210717
  Serious: No
  Sender: FDA-Public Use
  Company Number: US-STRIDES ARCOLAB LIMITED-2021SP000917

PATIENT
  Age: 65 Year
  Sex: Male

DRUGS (8)
  1. TETRABENAZINE. [Suspect]
     Active Substance: TETRABENAZINE
     Indication: MEIGE^S SYNDROME
     Dosage: UNK
     Route: 065
  2. CLONAZEPAM. [Suspect]
     Active Substance: CLONAZEPAM
     Indication: MEIGE^S SYNDROME
     Dosage: UNK
     Route: 065
  3. VALBENAZINE [Suspect]
     Active Substance: VALBENAZINE
     Indication: MEIGE^S SYNDROME
     Dosage: UNK
     Route: 065
  4. BACLOFEN. [Suspect]
     Active Substance: BACLOFEN
     Indication: MEIGE^S SYNDROME
     Dosage: UNK
     Route: 065
  5. DEUTETRABENAZINE [Suspect]
     Active Substance: DEUTETRABENAZINE
     Indication: MEIGE^S SYNDROME
     Dosage: UNK
     Route: 065
  6. ZOLPIDEM [Suspect]
     Active Substance: ZOLPIDEM TARTRATE
     Indication: MEIGE^S SYNDROME
     Dosage: UNK
     Route: 065
  7. TRIHEXYPHENIDYL [Suspect]
     Active Substance: TRIHEXYPHENIDYL
     Indication: MEIGE^S SYNDROME
     Dosage: UNK
     Route: 065
  8. BOTULINUM TOXIN [Suspect]
     Active Substance: BOTULINUM TOXIN NOS
     Indication: MEIGE^S SYNDROME
     Dosage: UNK, SEVERAL ROUNDS
     Route: 065

REACTIONS (1)
  - Drug ineffective for unapproved indication [Unknown]
